FAERS Safety Report 9087558 (Version 1)
Quarter: 2013Q1

REPORT INFORMATION
  Report Type: Report from Study
  Country: US (occurrence: US)
  Receive Date: 20130201
  Receipt Date: 20130201
  Transmission Date: 20140127
  Serious: No
  Sender: FDA-Public Use
  Company Number: US-ABBOTT-12P-163-1026337-00

PATIENT
  Age: 44 Year
  Sex: Female

DRUGS (4)
  1. HUMIRA [Suspect]
     Indication: PSORIATIC ARTHROPATHY
  2. ETODOLAC [Concomitant]
     Indication: PAIN
     Dosage: AS NEEDED
     Route: 048
  3. RESTASIS [Concomitant]
     Indication: DRY EYE
     Dosage: IN EACH EYE
  4. PLAQUENIL [Concomitant]
     Indication: SJOGREN^S SYNDROME
     Route: 048

REACTIONS (1)
  - Influenza [Not Recovered/Not Resolved]
